FAERS Safety Report 9524769 (Version 1)
Quarter: 2013Q1

REPORT INFORMATION
  Report Type: Spontaneous
  Country: US (occurrence: None)
  Receive Date: 20130313
  Receipt Date: 20130313
  Transmission Date: 20140127
  Serious: No
  Sender: FDA-Public Use
  Company Number: 1000031382

PATIENT
  Sex: Female

DRUGS (1)
  1. SAVELLA (MILNACIPRAN HYDROCHLORIDE) [Suspect]
     Dosage: 50 MG (50 MG, 1 IN 1 D), ORAL
     Route: 048

REACTIONS (2)
  - Nausea [None]
  - Abdominal discomfort [None]
